FAERS Safety Report 21210904 (Version 1)
Quarter: 2022Q3

REPORT INFORMATION
  Report Type: Spontaneous
  Country: US (occurrence: None)
  Receive Date: 20220812
  Receipt Date: 20220812
  Transmission Date: 20221026
  Serious: No
  Sender: FDA-Public Use
  Company Number: None

PATIENT
  Sex: Male
  Weight: 118.9 kg

DRUGS (1)
  1. TAXOL [Suspect]
     Active Substance: PACLITAXEL

REACTIONS (7)
  - Haemoglobin decreased [None]
  - Dizziness [None]
  - Dizziness [None]
  - Dyspnoea [None]
  - Asthenia [None]
  - Sciatica [None]
  - Fatigue [None]

NARRATIVE: CASE EVENT DATE: 20210930
